FAERS Safety Report 9074558 (Version 1)
Quarter: 2013Q1

REPORT INFORMATION
  Report Type: Report from Study
  Country: US (occurrence: US)
  Receive Date: 20130129
  Receipt Date: 20130129
  Transmission Date: 20140127
  Serious: No
  Sender: FDA-Public Use
  Company Number: US-ABBOTT-12P-163-0929035-00

PATIENT
  Age: 51 Year
  Sex: Female

DRUGS (2)
  1. HUMIRA 40 MG/0.8 ML PEN [Suspect]
     Indication: RHEUMATOID ARTHRITIS
     Dates: start: 200804
  2. PREDNISONE [Concomitant]
     Indication: PRODUCT USED FOR UNKNOWN INDICATION
     Dosage: 2.5MG DAILY

REACTIONS (1)
  - Rash macular [Not Recovered/Not Resolved]
